FAERS Safety Report 7458841-2 (Version None)
Quarter: 2011Q2

REPORT INFORMATION
  Report Type: 
  Country: None (occurrence: None)
  Receive Date: 20110504
  Receipt Date: 20110425
  Transmission Date: 20111010
  Serious: Yes (Other)
  Sender: FDA-Public Use
  Company Number: US-ROCHE-773538

PATIENT

DRUGS (5)
  1. TEMOZOLOMIDE [Suspect]
     Indication: GLIOMA
     Route: 048
  2. THIOGUANINE [Suspect]
     Indication: GLIOMA
     Route: 048
  3. CAPECITABINE [Suspect]
     Indication: GLIOMA
     Route: 048
  4. CELECOXIB [Suspect]
     Indication: GLIOMA
     Route: 048
  5. LOMUSTINE [Suspect]
     Indication: GLIOMA
     Route: 048

REACTIONS (26)
  - MUSCULAR WEAKNESS [None]
  - CONSTIPATION [None]
  - DYSPNOEA [None]
  - ANAEMIA [None]
  - LEUKOPENIA [None]
  - THROMBOCYTOPENIA [None]
  - HYPOKALAEMIA [None]
  - DEHYDRATION [None]
  - VOMITING [None]
  - CONVULSION [None]
  - MENTAL STATUS CHANGES [None]
  - DECREASED APPETITE [None]
  - COLITIS [None]
  - DIARRHOEA [None]
  - FATIGUE [None]
  - EMBOLISM [None]
  - LYMPHOPENIA [None]
  - ABDOMINAL PAIN [None]
  - NEUTROPENIA [None]
  - HYPOALBUMINAEMIA [None]
  - HYPONATRAEMIA [None]
  - HYPOPHOSPHATAEMIA [None]
  - PNEUMONITIS [None]
  - SEPSIS [None]
  - ALANINE AMINOTRANSFERASE ABNORMAL [None]
  - PERIPHERAL SENSORY NEUROPATHY [None]
